FAERS Safety Report 21631541 (Version 2)
Quarter: 2023Q1

REPORT INFORMATION
  Report Type: Spontaneous
  Country: US (occurrence: US)
  Receive Date: 20221123
  Receipt Date: 20230104
  Transmission Date: 20230418
  Serious: No
  Sender: FDA-Public Use
  Company Number: US-SA-SAC20221118001224

PATIENT
  Age: 66 Year
  Sex: Female
  Weight: 84.36 kg

DRUGS (15)
  1. DUPIXENT [Suspect]
     Active Substance: DUPILUMAB
     Indication: Primary biliary cholangitis
     Dosage: 1 DF, QOW
     Route: 058
     Dates: start: 20220811
  2. DUPIXENT [Suspect]
     Active Substance: DUPILUMAB
     Indication: Dermatitis atopic
  3. OCALIVA [Concomitant]
     Active Substance: OBETICHOLIC ACID
  4. CALCIUM [Concomitant]
     Active Substance: CALCIUM
  5. FLONASE SENSIMIST ALLERGY RELIEF [Concomitant]
     Active Substance: FLUTICASONE FUROATE
  6. IBUPROFEN [Concomitant]
     Active Substance: IBUPROFEN
  7. VITAMIN D3 [Concomitant]
     Active Substance: CHOLECALCIFEROL
  8. METRONIDAZOLE [Concomitant]
     Active Substance: METRONIDAZOLE
  9. IVERMECTIN [Concomitant]
     Active Substance: IVERMECTIN
  10. AZELAIC ACID [Concomitant]
     Active Substance: AZELAIC ACID
  11. MONTELUKAST SODIUM [Concomitant]
     Active Substance: MONTELUKAST SODIUM
  12. CLOBETASOL PROPIONATE [Concomitant]
     Active Substance: CLOBETASOL PROPIONATE
  13. MELOXICAM [Concomitant]
     Active Substance: MELOXICAM
  14. SYMBICORT [Concomitant]
     Active Substance: BUDESONIDE\FORMOTEROL FUMARATE DIHYDRATE
  15. AMOXICILLIN [Concomitant]
     Active Substance: AMOXICILLIN

REACTIONS (4)
  - Rosacea [Not Recovered/Not Resolved]
  - Perioral dermatitis [Not Recovered/Not Resolved]
  - Oral herpes [Not Recovered/Not Resolved]
  - Product use in unapproved indication [Unknown]

NARRATIVE: CASE EVENT DATE: 20220811
